FAERS Safety Report 21485187 (Version 1)
Quarter: 2022Q4

REPORT INFORMATION
  Report Type: Spontaneous
  Country: US (occurrence: US)
  Receive Date: 20221020
  Receipt Date: 20221020
  Transmission Date: 20230113
  Serious: No
  Sender: FDA-Public Use
  Company Number: US-PFIZER INC-202201240597

PATIENT
  Age: 62 Year
  Sex: Female
  Weight: 91.85 kg

DRUGS (2)
  1. PAXLOVID [Suspect]
     Active Substance: NIRMATRELVIR\RITONAVIR
     Indication: COVID-19 treatment
     Dosage: UNK RENAL DOSING FOR 5 DAYS
     Dates: start: 20221016
  2. PREDNISONE [Concomitant]
     Active Substance: PREDNISONE
     Dosage: UNK TAKE MEDICATION FOR 7 DAYS
     Dates: start: 20221016

REACTIONS (1)
  - Product prescribing error [Unknown]

NARRATIVE: CASE EVENT DATE: 20221016
